APPROVED DRUG PRODUCT: MINOCYCLINE HYDROCHLORIDE
Active Ingredient: MINOCYCLINE HYDROCHLORIDE
Strength: EQ 55MG BASE
Dosage Form/Route: TABLET, EXTENDED RELEASE;ORAL
Application: A091424 | Product #002 | TE Code: AB
Applicant: CHARTWELL RX SCIENCES LLC
Approved: Nov 30, 2011 | RLD: No | RS: No | Type: RX